FAERS Safety Report 5815621-9 (Version None)
Quarter: 2008Q3

REPORT INFORMATION
  Report Type: 
  Country: None (occurrence: None)
  Receive Date: 20080716
  Receipt Date: 20080708
  Transmission Date: 20090109
  Serious: Yes (Hospitalization)
  Sender: FDA-Public Use
  Company Number: 2008SP009030

PATIENT
  Age: 51 Year
  Sex: Female
  Weight: 61.2356 kg

DRUGS (8)
  1. PEG-INTRON [Suspect]
     Indication: HEPATITIS C
     Dosage: 120 MCG;QW;IM
     Route: 030
     Dates: start: 20080208
  2. RIBAVIRIN [Suspect]
     Indication: HEPATITIS C
     Dosage: 1000 MG;QD;PO
     Route: 048
     Dates: start: 20080208
  3. AVAPRO [Concomitant]
  4. LOPRESSOR [Concomitant]
  5. AVALIDE [Concomitant]
  6. CLIMARA [Concomitant]
  7. ZYRTEC [Concomitant]
  8. FLONASE [Concomitant]

REACTIONS (22)
  - ALOPECIA [None]
  - ANGER [None]
  - ANOREXIA [None]
  - BLOOD PRESSURE ABNORMAL [None]
  - CHEST DISCOMFORT [None]
  - DEHYDRATION [None]
  - DIARRHOEA [None]
  - DIZZINESS [None]
  - DRY SKIN [None]
  - DYSPNOEA [None]
  - ELECTROCARDIOGRAM ST-T CHANGE [None]
  - FATIGUE [None]
  - FOOD CRAVING [None]
  - HYPOKALAEMIA [None]
  - ILL-DEFINED DISORDER [None]
  - NAUSEA [None]
  - PLATELET COUNT DECREASED [None]
  - PRURITUS [None]
  - RASH MACULAR [None]
  - VISUAL IMPAIRMENT [None]
  - WEIGHT DECREASED [None]
  - WHITE BLOOD CELL COUNT DECREASED [None]
